FAERS Safety Report 12798639 (Version 1)
Quarter: 2016Q3

REPORT INFORMATION
  Report Type: Spontaneous
  Country: GR (occurrence: GR)
  Receive Date: 20160930
  Receipt Date: 20160930
  Transmission Date: 20161109
  Serious: Yes (Death, Life-Threatening, Other)
  Sender: FDA-Public Use
  Company Number: GR-GLENMARK PHARMACEUTICALS INC, USA.-2016GMK024423

PATIENT

DRUGS (8)
  1. EPINEPHRINE. [Suspect]
     Active Substance: EPINEPHRINE
     Indication: MENINGITIS STREPTOCOCCAL
     Dosage: UNK
     Route: 065
  2. ACYCLOVIR                          /00587301/ [Suspect]
     Active Substance: ACYCLOVIR
     Indication: MENINGITIS STREPTOCOCCAL
     Dosage: 250 MG X3
     Route: 065
  3. MANNITOL. [Suspect]
     Active Substance: MANNITOL
     Indication: MENINGITIS STREPTOCOCCAL
     Dosage: UNK
     Route: 065
  4. FUROSEMIDE. [Suspect]
     Active Substance: FUROSEMIDE
     Indication: MENINGITIS STREPTOCOCCAL
     Dosage: UNK
     Route: 065
  5. HYDROCORTISONE BUTYRATE. [Suspect]
     Active Substance: HYDROCORTISONE BUTYRATE
     Indication: MENINGITIS STREPTOCOCCAL
     Dosage: UNK
     Route: 065
  6. CEFTRIAXONE. [Suspect]
     Active Substance: CEFTRIAXONE
     Indication: MENINGITIS STREPTOCOCCAL
     Dosage: 2 G X2
     Route: 065
  7. VANCOMYCIN [Suspect]
     Active Substance: VANCOMYCIN
     Indication: MENINGITIS STREPTOCOCCAL
     Dosage: 500 MG X4
     Route: 065
  8. FLUDROCORTISONE [Concomitant]
     Active Substance: FLUDROCORTISONE
     Indication: SYSTEMIC LUPUS ERYTHEMATOSUS
     Dosage: 10 MG/ 24 HR
     Route: 065

REACTIONS (2)
  - Drug ineffective [Fatal]
  - Multiple organ dysfunction syndrome [Fatal]
